FAERS Safety Report 14525712 (Version 2)
Quarter: 2018Q1

REPORT INFORMATION
  Report Type: Spontaneous
  Country: SA (occurrence: SA)
  Receive Date: 20180213
  Receipt Date: 20180216
  Transmission Date: 20180509
  Serious: Yes (Life-Threatening, Other)
  Sender: FDA-Public Use
  Company Number: SA-ELI_LILLY_AND_COMPANY-SA201802004869

PATIENT
  Age: 80 Year
  Sex: Female

DRUGS (1)
  1. TERIPARATIDE [Suspect]
     Active Substance: TERIPARATIDE
     Indication: PRODUCT USED FOR UNKNOWN INDICATION
     Dosage: 20 UG, UNKNOWN
     Route: 058
     Dates: start: 20160623, end: 20160923

REACTIONS (4)
  - Asthma [Unknown]
  - Chest pain [Unknown]
  - Thrombosis [Unknown]
  - Myocardial infarction [Recovered/Resolved]
